FAERS Safety Report 7293497-3 (Version None)
Quarter: 2011Q1

REPORT INFORMATION
  Report Type: 
  Country: None (occurrence: None)
  Receive Date: 20110203
  Receipt Date: 20110118
  Transmission Date: 20110831
  Serious: Yes (Death)
  Sender: FDA-Public Use
  Company Number: B0694615A

PATIENT
  Age: 21 Year
  Sex: Female

DRUGS (8)
  1. ALPRAZOLAM [Suspect]
     Dosage: ORAL
     Route: 048
  2. HYDROCODONE (FORMULATION UNKNOWN) (GENERIC) (HYDROCODONE) [Suspect]
     Dosage: ORAL
     Route: 048
  3. PROCHLORPERAZINE (FORMULATION UNKNOWN) (GENERIC) (PROCHLORPERAZINE) [Suspect]
     Dosage: ORAL
     Route: 048
  4. ESOMEPRAZOLE (FORMULATION UNKNOWN) (GENERIC) (ESOMEPRAZOLE) [Suspect]
     Dosage: ORAL
     Route: 048
  5. METHADONE HCL [Suspect]
     Dosage: ORAL
     Route: 048
  6. LAMOTRIGINE [Suspect]
     Dosage: ORAL
     Route: 048
  7. DICYCLOMINE HYDROCHLORIDE (FORMULATION UNKNOWN) (GENERIC) (DICYCLOMINE [Suspect]
     Dosage: ORAL
     Route: 048
  8. HYDROCODONE BITARTRATE + ACETAMINOPHEN [Suspect]
     Dosage: ORAL
     Route: 048

REACTIONS (2)
  - CARDIO-RESPIRATORY ARREST [None]
  - COMPLETED SUICIDE [None]
